FAERS Safety Report 8274082-3 (Version None)
Quarter: 2012Q2

REPORT INFORMATION
  Report Type: 
  Country: None (occurrence: None)
  Receive Date: 20120406
  Receipt Date: 20120406
  Transmission Date: 20120825
  Serious: Yes (Other)
  Sender: FDA-Public Use
  Company Number: None

PATIENT
  Sex: Male

DRUGS (3)
  1. PREDNISONE TAB [Concomitant]
  2. ZYTIGA [Suspect]
     Indication: PROSTATE CANCER
     Dosage: 250MG DAILY ORAL
     Route: 048
     Dates: start: 20110713, end: 20120404
  3. ZYTIGA [Suspect]

REACTIONS (1)
  - DISEASE PROGRESSION [None]
